FAERS Safety Report 19102541 (Version 1)
Quarter: 2021Q2

REPORT INFORMATION
  Report Type: Spontaneous
  Country: US (occurrence: US)
  Receive Date: 20210407
  Receipt Date: 20210407
  Transmission Date: 20210717
  Serious: Yes (Hospitalization)
  Sender: FDA-Public Use
  Company Number: None

PATIENT
  Age: 70 Year
  Sex: Female
  Weight: 77.58 kg

DRUGS (23)
  1. HYDROCHLOROTHIAZIDE. [Concomitant]
     Active Substance: HYDROCHLOROTHIAZIDE
  2. LEVOTHYROXINE. [Concomitant]
     Active Substance: LEVOTHYROXINE
  3. RANITIDINE. [Concomitant]
     Active Substance: RANITIDINE
  4. TRADJENTA [Concomitant]
     Active Substance: LINAGLIPTIN
  5. ATORVASTATIN [Concomitant]
     Active Substance: ATORVASTATIN
  6. GABAPENTIN. [Concomitant]
     Active Substance: GABAPENTIN
  7. JANUVIA [Concomitant]
     Active Substance: SITAGLIPTIN PHOSPHATE
  8. METFORMIN [Concomitant]
     Active Substance: METFORMIN HYDROCHLORIDE
  9. METHIMAZOLE. [Concomitant]
     Active Substance: METHIMAZOLE
  10. MULTIPLEVITAMIN [Concomitant]
  11. ASPIRIN. [Concomitant]
     Active Substance: ASPIRIN
  12. LANTUS SOLOSTAR [Concomitant]
     Active Substance: INSULIN GLARGINE
  13. LAPATINIB [Concomitant]
     Active Substance: LAPATINIB
  14. PRAVACHOL [Concomitant]
     Active Substance: PRAVASTATIN SODIUM
  15. CAPECITABINE. [Suspect]
     Active Substance: CAPECITABINE
     Indication: BREAST CANCER FEMALE
     Dosage: ?          OTHER FREQUENCY:BID FOR 14/21DAYS;?
     Route: 048
     Dates: start: 20151217
  16. LYRICA [Concomitant]
     Active Substance: PREGABALIN
  17. MORPHINE SULFATE. [Concomitant]
     Active Substance: MORPHINE SULFATE
  18. TRAMADOL. [Concomitant]
     Active Substance: TRAMADOL
  19. LETROZOLE. [Concomitant]
     Active Substance: LETROZOLE
  20. CAPECITABINE. [Suspect]
     Active Substance: CAPECITABINE
     Indication: BREAST CANCER FEMALE
     Dosage: ?          OTHER FREQUENCY:BID 14/21 DAYS;?
     Route: 048
     Dates: start: 20151217
  21. CALCIUM + D [Concomitant]
     Active Substance: CALCIUM\VITAMIN D
  22. LEVEMIR [Concomitant]
     Active Substance: INSULIN DETEMIR
  23. METOPROLOL. [Concomitant]
     Active Substance: METOPROLOL

REACTIONS (1)
  - COVID-19 [None]

NARRATIVE: CASE EVENT DATE: 20210317
